FAERS Safety Report 4832229-2 (Version None)
Quarter: 2005Q4

REPORT INFORMATION
  Report Type: 
  Country: None (occurrence: None)
  Receive Date: 20051118
  Receipt Date: 20051111
  Transmission Date: 20060501
  Serious: Yes (Hospitalization)
  Sender: FDA-Public Use
  Company Number: AU-MERCK-0511AUS00195

PATIENT
  Age: 63 Year
  Sex: Female

DRUGS (2)
  1. FOSAMAX [Suspect]
     Indication: OSTEOPOROSIS
     Route: 048
     Dates: start: 20011101, end: 20050201
  2. FOSAMAX [Suspect]
     Route: 048
     Dates: start: 20050101

REACTIONS (10)
  - CONSTIPATION [None]
  - DRY EYE [None]
  - EYE DISORDER [None]
  - EYE PAIN [None]
  - GALLBLADDER DISORDER [None]
  - OCULAR HYPERAEMIA [None]
  - PANCREATITIS [None]
  - THORACIC VERTEBRAL FRACTURE [None]
  - VISION BLURRED [None]
  - WEIGHT DECREASED [None]
